FAERS Safety Report 9988594 (Version 9)
Quarter: 2016Q1

REPORT INFORMATION
  Report Type: Report from Study
  Country: CA (occurrence: CA)
  Receive Date: 20140310
  Receipt Date: 20160205
  Transmission Date: 20160526
  Serious: Yes (Hospitalization, Other)
  Sender: FDA-Public Use
  Company Number: CA-ROCHE-1212196

PATIENT
  Age: 56 Year
  Sex: Female
  Weight: 72.5 kg

DRUGS (10)
  1. ACTEMRA [Suspect]
     Active Substance: TOCILIZUMAB
     Route: 042
     Dates: start: 20120911
  2. ACTEMRA [Suspect]
     Active Substance: TOCILIZUMAB
     Route: 042
     Dates: start: 20121011
  3. ACTEMRA [Suspect]
     Active Substance: TOCILIZUMAB
     Indication: RHEUMATOID ARTHRITIS
     Route: 042
     Dates: start: 20120613
  4. ACTEMRA [Suspect]
     Active Substance: TOCILIZUMAB
     Route: 042
     Dates: start: 20120717
  5. METHOTREXATE [Suspect]
     Active Substance: METHOTREXATE
     Indication: PRODUCT USED FOR UNKNOWN INDICATION
     Dosage: LAST DOSE OF METHOTREXATE WAS ON 10/NOV/2014.
     Route: 065
     Dates: end: 201411
  6. FOLIC ACID. [Concomitant]
     Active Substance: FOLIC ACID
  7. PLAQUENIL [Concomitant]
     Active Substance: HYDROXYCHLOROQUINE SULFATE
  8. ACTEMRA [Suspect]
     Active Substance: TOCILIZUMAB
     Route: 042
     Dates: start: 20121115
  9. ACTEMRA [Suspect]
     Active Substance: TOCILIZUMAB
     Dosage: LAST DOSE WAS ON 31/OCT/2014.
     Route: 042
     Dates: start: 20141031
  10. NEXIUM [Concomitant]
     Active Substance: ESOMEPRAZOLE MAGNESIUM

REACTIONS (17)
  - Weight increased [Unknown]
  - Wound [Not Recovered/Not Resolved]
  - Oral mucosal blistering [Recovered/Resolved]
  - Hepatic enzyme increased [Unknown]
  - Heart rate increased [Unknown]
  - Wound [Recovered/Resolved]
  - Nasopharyngitis [Recovered/Resolved]
  - Joint injury [Not Recovered/Not Resolved]
  - Spinal pain [Not Recovered/Not Resolved]
  - Wound [Not Recovered/Not Resolved]
  - Dry skin [Recovering/Resolving]
  - Blood pressure increased [Unknown]
  - Left ventricular failure [Unknown]
  - Arthralgia [Not Recovered/Not Resolved]
  - Oral disorder [Recovering/Resolving]
  - Pneumonia [Unknown]
  - Infusion related reaction [Unknown]

NARRATIVE: CASE EVENT DATE: 2013
